FAERS Safety Report 4365070-8 (Version None)
Quarter: 2004Q2

REPORT INFORMATION
  Report Type: 
  Country: None (occurrence: None)
  Receive Date: 20040521
  Receipt Date: 20040506
  Transmission Date: 20050107
  Serious: Yes (Other)
  Sender: FDA-Public Use
  Company Number: 2004-DE-02634GD

PATIENT

DRUGS (3)
  1. IPRATROPIUM-BROMIDE (IPRATROPIUM BROMIDE) (LO) [Suspect]
     Indication: ASTHMA
     Dosage: 750 MCG (SEE TEXT)
     Route: 055
  2. SALBUTAMOL SULFATE (SALBUTAMOL SULFATE) (LO) [Suspect]
     Indication: ASTHMA
     Dosage: 150, IH
     Route: 055
  3. OXYGEN (OXYGEN) (NR) [Concomitant]

REACTIONS (1)
  - DRUG INEFFECTIVE [None]
